FAERS Safety Report 6363656-2 (Version None)
Quarter: 2009Q3

REPORT INFORMATION
  Report Type: 
  Country: None (occurrence: None)
  Receive Date: 20090919
  Receipt Date: 20090702
  Transmission Date: 20100115
  Serious: No
  Sender: FDA-Public Use
  Company Number: US-ABBOTT-09P-163-0583696-00

PATIENT
  Sex: Female
  Weight: 77.18 kg

DRUGS (6)
  1. HUMIRA [Suspect]
     Indication: PSORIATIC ARTHROPATHY
     Route: 058
     Dates: start: 20081201
  2. HUMIRA [Suspect]
     Indication: PSORIASIS
  3. NAPROXEN [Concomitant]
     Indication: PAIN
     Route: 048
  4. VESICARE [Concomitant]
     Indication: URINARY INCONTINENCE
     Route: 048
  5. FISH OIL [Concomitant]
     Indication: BLOOD CHOLESTEROL
     Route: 048
  6. VITAMIN E [Concomitant]
     Indication: VITAMIN SUPPLEMENTATION
     Route: 048

REACTIONS (1)
  - DRUG DOSE OMISSION [None]
